FAERS Safety Report 10061586 (Version 1)
Quarter: 2014Q2

REPORT INFORMATION
  Report Type: Report from Study
  Country: ES (occurrence: ES)
  Receive Date: 20140407
  Receipt Date: 20140407
  Transmission Date: 20141212
  Serious: Yes (Other)
  Sender: FDA-Public Use
  Company Number: ES-AMGEN-ESPCT2014023585

PATIENT
  Age: 55 Year
  Sex: Male
  Weight: 86 kg

DRUGS (14)
  1. DENOSUMAB [Suspect]
     Indication: PLASMA CELL MYELOMA
     Dosage: 120 MG, UNK
     Route: 065
     Dates: start: 20130104, end: 20140228
  2. BORTEZOMIB [Concomitant]
     Dosage: UNK
     Dates: start: 20121219
  3. THALIDOMIDE [Concomitant]
     Dosage: UNK
     Dates: start: 201301
  4. DEXAMETHASONE [Concomitant]
     Dosage: UNK
     Dates: start: 20121219
  5. ALOPURINOL [Concomitant]
     Dosage: 300 MG, UNK
     Route: 048
     Dates: start: 20130402
  6. FUROSEMIDE [Concomitant]
     Dosage: 40 MG, UNK
     Route: 048
     Dates: start: 20130129
  7. SIMVASTATINA [Concomitant]
     Dosage: 20 MG/KG, UNK
     Route: 048
     Dates: start: 20130402
  8. DIAZEPAM [Concomitant]
     Dosage: 7.5 MG, UNK
     Route: 048
     Dates: start: 20130518
  9. ACICLOVIR [Concomitant]
     Dosage: 400 MG, UNK
     Route: 048
     Dates: start: 20130118
  10. CALCIUM + VITAMIN D                /01483701/ [Concomitant]
     Dosage: 1 UNK, UNK
     Route: 048
     Dates: start: 20130104
  11. SEPTRIN [Concomitant]
     Dosage: 2 UNK, UNK
     Route: 048
     Dates: start: 20130801
  12. CLEXANE [Concomitant]
     Dosage: 60 MG, UNK
     Route: 058
     Dates: start: 20130129
  13. FERO-GRADUMET [Concomitant]
     Dosage: 1 UNK, UNK
     Route: 048
     Dates: start: 20130301
  14. OMEPRAZOL                          /00661201/ [Concomitant]
     Dosage: 20 MG, UNK
     Route: 048
     Dates: start: 20130311

REACTIONS (1)
  - Osteonecrosis of jaw [Not Recovered/Not Resolved]
